FAERS Safety Report 19859626 (Version 1)
Quarter: 2021Q3

REPORT INFORMATION
  Report Type: Spontaneous
  Country: US (occurrence: US)
  Receive Date: 20210920
  Receipt Date: 20210920
  Transmission Date: 20211014
  Serious: Yes (Other)
  Sender: FDA-Public Use
  Company Number: None

PATIENT
  Age: 60 Year
  Sex: Female
  Weight: 62.1 kg

DRUGS (1)
  1. AUSTEDO [Suspect]
     Active Substance: DEUTETRABENAZINE
     Indication: DYSKINESIA
     Dates: start: 20210811, end: 20210917

REACTIONS (4)
  - Abdominal pain upper [None]
  - Diarrhoea [None]
  - Crying [None]
  - Therapy cessation [None]

NARRATIVE: CASE EVENT DATE: 20210917
